FAERS Safety Report 18504716 (Version 2)
Quarter: 2020Q4

REPORT INFORMATION
  Report Type: Spontaneous
  Country: CH (occurrence: CH)
  Receive Date: 20201115
  Receipt Date: 20201203
  Transmission Date: 20210114
  Serious: Yes (Hospitalization, Other)
  Sender: FDA-Public Use
  Company Number: NVSC2020CH303984

PATIENT
  Sex: Female

DRUGS (18)
  1. PANTOPRAZOLE SODIUM. [Suspect]
     Active Substance: PANTOPRAZOLE SODIUM
     Indication: PRODUCT USED FOR UNKNOWN INDICATION
     Dosage: 40 MG, DAILY (1-0-0-0)
     Route: 065
  2. VALSARTAN SANDOZ [Suspect]
     Active Substance: VALSARTAN
     Indication: PRODUCT USED FOR UNKNOWN INDICATION
     Dosage: 160 MG, DAILY (1-0-0-0)
     Route: 065
  3. ATORVASTATIN SANDOZ [Suspect]
     Active Substance: ATORVASTATIN
     Indication: PRODUCT USED FOR UNKNOWN INDICATION
     Dosage: 40 MG, DAILY (0-0-1-0)
     Route: 065
  4. ABILIFY [Concomitant]
     Active Substance: ARIPIPRAZOLE
     Indication: PRODUCT USED FOR UNKNOWN INDICATION
     Dosage: 15 MG, DAILY (1-0-0-0)
     Route: 065
  5. WELLBUTRIN [Concomitant]
     Active Substance: BUPROPION HYDROCHLORIDE
     Indication: PRODUCT USED FOR UNKNOWN INDICATION
     Dosage: 300 MG, DAILY (1-0-0-0)
     Route: 065
  6. BRILIQUE [Concomitant]
     Active Substance: TICAGRELOR
     Indication: PRODUCT USED FOR UNKNOWN INDICATION
     Dosage: 90 MG, DAILY (1-0-1-0)
     Route: 065
  7. NEBILET [Concomitant]
     Active Substance: NEBIVOLOL
     Indication: PRODUCT USED FOR UNKNOWN INDICATION
     Dosage: 5 MG, DAILY (1-0-0-0)
     Route: 065
  8. HUMALOG [Concomitant]
     Active Substance: INSULIN LISPRO
     Indication: PRODUCT USED FOR UNKNOWN INDICATION
     Dosage: 100 IU/ML
     Route: 065
  9. IMOVANE [Concomitant]
     Active Substance: ZOPICLONE
     Indication: PRODUCT USED FOR UNKNOWN INDICATION
     Dosage: 7.5 MG, DAILY (0-0-0-1)
     Route: 065
  10. VISCOTEARS [Concomitant]
     Active Substance: CARBOMER
     Indication: PRODUCT USED FOR UNKNOWN INDICATION
     Dosage: 1-0-1-0 (DAILY)
     Route: 065
  11. ASPIRIN. [Concomitant]
     Active Substance: ASPIRIN
     Indication: PRODUCT USED FOR UNKNOWN INDICATION
     Dosage: 100 MG, DAILY (1-0-0-0)
     Route: 065
  12. KALCIPOS D3 [Concomitant]
     Indication: PRODUCT USED FOR UNKNOWN INDICATION
     Dosage: 500/800, DAILY (0-1-0-0)
     Route: 065
  13. TASIGNA [Suspect]
     Active Substance: NILOTINIB
     Indication: CHRONIC MYELOID LEUKAEMIA
     Dosage: 150 MG, DAILY (2-0-2)
     Route: 048
     Dates: start: 20190927, end: 20200701
  14. KCL-RETARD [Concomitant]
     Active Substance: POTASSIUM CHLORIDE
     Indication: PRODUCT USED FOR UNKNOWN INDICATION
     Dosage: 10 MMOL, DAILY (0-2-0-0)
     Route: 065
  15. TORASEMIDE SANDOZ [Suspect]
     Active Substance: TORSEMIDE
     Indication: PRODUCT USED FOR UNKNOWN INDICATION
     Dosage: 10 MG, DAILY (1-0-0-0)
     Route: 065
  16. ELTROXIN LF [Concomitant]
     Indication: PRODUCT USED FOR UNKNOWN INDICATION
     Dosage: 0.1 MG, DAILY (1X?-0-0-0)
     Route: 065
  17. QUETIAPINE SANDOZ [Suspect]
     Active Substance: QUETIAPINE
     Indication: PRODUCT USED FOR UNKNOWN INDICATION
     Dosage: 150 MG, DAILY (0-0-0-1)
     Route: 065
  18. METFORMIN [Concomitant]
     Active Substance: METFORMIN HYDROCHLORIDE
     Indication: PRODUCT USED FOR UNKNOWN INDICATION
     Dosage: 850 MG, DAILY (1-0-1-0)
     Route: 065

REACTIONS (2)
  - Angina pectoris [Recovered/Resolved]
  - Myocardial infarction [Recovered/Resolved]
